FAERS Safety Report 17979430 (Version 1)
Quarter: 2020Q3

REPORT INFORMATION
  Report Type: Spontaneous
  Country: US (occurrence: US)
  Receive Date: 20200703
  Receipt Date: 20200703
  Transmission Date: 20201103
  Serious: Yes (Other)
  Sender: FDA-Public Use
  Company Number: US-SA-2020SA169828

PATIENT

DRUGS (16)
  1. TIZANIDINE HCL [Concomitant]
     Active Substance: TIZANIDINE HYDROCHLORIDE
  2. VITAMIN D3 [Concomitant]
     Active Substance: CHOLECALCIFEROL
  3. TRAMADOL HCL [Concomitant]
     Active Substance: TRAMADOL HYDROCHLORIDE
  4. AIMOVIG [Concomitant]
     Active Substance: ERENUMAB-AOOE
  5. MECLIZINE HCL [Concomitant]
     Active Substance: MECLIZINE HYDROCHLORIDE
  6. ONDANSETRON HCL [Concomitant]
     Active Substance: ONDANSETRON HYDROCHLORIDE
  7. AUBAGIO [Suspect]
     Active Substance: TERIFLUNOMIDE
     Indication: MULTIPLE SCLEROSIS
  8. BACLOFEN. [Concomitant]
     Active Substance: BACLOFEN
  9. DIAZEPAM. [Concomitant]
     Active Substance: DIAZEPAM
  10. LORATADINE. [Concomitant]
     Active Substance: LORATADINE
  11. AMPYRA [Concomitant]
     Active Substance: DALFAMPRIDINE
  12. RIZATRIPTAN BENZOATE. [Concomitant]
     Active Substance: RIZATRIPTAN BENZOATE
  13. TAMSULOSIN HCL [Concomitant]
     Active Substance: TAMSULOSIN HYDROCHLORIDE
  14. GABAPENTIN. [Concomitant]
     Active Substance: GABAPENTIN
  15. VITAMINS NOS [Concomitant]
     Active Substance: VITAMINS
  16. PREDNISONE. [Concomitant]
     Active Substance: PREDNISONE

REACTIONS (3)
  - Dysphagia [Unknown]
  - Multiple sclerosis [Unknown]
  - Vertebral osteophyte [Unknown]
